FAERS Safety Report 4692883-5 (Version None)
Quarter: 2005Q2

REPORT INFORMATION
  Report Type: 
  Country: None (occurrence: None)
  Receive Date: 20050615
  Receipt Date: 20050602
  Transmission Date: 20051028
  Serious: Yes (Hospitalization)
  Sender: FDA-Public Use
  Company Number: 2005083980

PATIENT
  Age: 78 Year
  Sex: Female

DRUGS (6)
  1. ATARAX [Suspect]
     Indication: ILL-DEFINED DISORDER
     Dosage: ORAL
     Route: 048
  2. PAROXETINE HCL [Suspect]
     Indication: ILL-DEFINED DISORDER
     Dosage: ORAL
     Route: 048
  3. TRIHEXYPHENIDYL HCL [Suspect]
     Indication: DYSKINESIA
     Dosage: 4 MG (1 D), ORAL
     Route: 048
     Dates: start: 20050427, end: 20050502
  4. SECTRAL [Suspect]
     Indication: ILL-DEFINED DISORDER
     Dosage: ORAL
     Route: 048
  5. LASIX [Suspect]
     Indication: ILL-DEFINED DISORDER
     Dosage: ORAL
     Route: 048
  6. INEXIUM (ESOMEPRAZOLE MAGNESIUM) [Suspect]
     Indication: ILL-DEFINED DISORDER
     Dosage: ORAL
     Route: 048

REACTIONS (8)
  - ABDOMINAL PAIN UPPER [None]
  - ANTICHOLINERGIC SYNDROME [None]
  - DEHYDRATION [None]
  - DRY MOUTH [None]
  - DYSKINESIA [None]
  - HYPERTHERMIA [None]
  - RESTLESSNESS [None]
  - VOMITING [None]
